FAERS Safety Report 7815584-0 (Version None)
Quarter: 2011Q4

REPORT INFORMATION
  Report Type: 
  Country: None (occurrence: None)
  Receive Date: 20111014
  Receipt Date: 20110929
  Transmission Date: 20120403
  Serious: Yes (Other)
  Sender: FDA-Public Use
  Company Number: US-ENDO PHARMACEUTICALS INC.-APIR20110038

PATIENT
  Age: 59 Year
  Sex: Male

DRUGS (3)
  1. ZOLPIDEM TARTRATE [Suspect]
     Indication: DRUG DIVERSION
     Dosage: N/A
  2. ALPRAZOLAM [Suspect]
     Indication: DRUG DIVERSION
     Dosage: N/A
  3. OXYCODONE HCL [Suspect]
     Indication: DRUG DIVERSION
     Dosage: N/A

REACTIONS (1)
  - DRUG DIVERSION [None]
